FAERS Safety Report 15144387 (Version 2)
Quarter: 2018Q4

REPORT INFORMATION
  Report Type: Spontaneous
  Country: US (occurrence: US)
  Receive Date: 20180713
  Receipt Date: 20181011
  Transmission Date: 20190204
  Serious: No
  Sender: FDA-Public Use
  Company Number: US-NOVOPROD-598705

PATIENT
  Age: 29 Year
  Sex: Female

DRUGS (1)
  1. FIASP 3ML PDS290 [Suspect]
     Active Substance: INSULIN ASPART
     Indication: TYPE 1 DIABETES MELLITUS
     Dosage: UNK
     Route: 058
     Dates: end: 20180424

REACTIONS (3)
  - Erythema [Recovered/Resolved]
  - Liquid product physical issue [Unknown]
  - Skin reaction [Recovered/Resolved]

NARRATIVE: CASE EVENT DATE: 201804
